FAERS Safety Report 12616638 (Version 1)
Quarter: 2016Q3

REPORT INFORMATION
  Report Type: Spontaneous
  Country: JP (occurrence: JP)
  Receive Date: 20160802
  Receipt Date: 20160802
  Transmission Date: 20161109
  Serious: Yes (Death, Hospitalization, Other)
  Sender: FDA-Public Use
  Company Number: JP-BAUSCH-BL-2016-018279

PATIENT
  Age: 80 Year
  Sex: Male

DRUGS (24)
  1. CYCLOPHOSPHAMIDE. [Suspect]
     Active Substance: CYCLOPHOSPHAMIDE
     Dosage: EVERY OTHER DAY
     Route: 048
     Dates: start: 201501
  2. RITUXIMAB [Suspect]
     Active Substance: RITUXIMAB
     Indication: LYMPHOMA
     Dosage: (6 CYCLES) SIX COURSES
     Route: 065
  3. DOXORUBICIN [Suspect]
     Active Substance: DOXORUBICIN
     Indication: LYMPHOMA
     Dosage: (6 CYCLES) SIX COURSES
     Route: 065
  4. VINCRISTINE [Suspect]
     Active Substance: VINCRISTINE
     Indication: LYMPHOMA
     Dosage: (6 CYCLES) SIX COURSES
     Route: 065
  5. GEMCITABINE [Suspect]
     Active Substance: GEMCITABINE\GEMCITABINE HYDROCHLORIDE
     Indication: LYMPHOMA
     Dosage: (2 CYCLES) TWO COURSES
     Route: 065
  6. ETOPOSIDE. [Suspect]
     Active Substance: ETOPOSIDE
     Route: 065
     Dates: start: 201502
  7. PERAMIVIR [Suspect]
     Active Substance: PERAMIVIR
     Route: 042
     Dates: start: 201502
  8. PREDNISOLONE. [Suspect]
     Active Substance: PREDNISOLONE
     Dosage: EVERY OTHER DAY
     Route: 065
     Dates: start: 201501
  9. CISPLATIN. [Suspect]
     Active Substance: CISPLATIN
     Indication: LYMPHOMA
     Dosage: (2 CYCLES) TWO COURSES
     Route: 065
  10. PERAMIVIR [Suspect]
     Active Substance: PERAMIVIR
     Indication: INFLUENZA
     Dosage: (2 CYCLES) TWO COURSES
     Route: 042
     Dates: start: 201502
  11. PREDNISOLONE. [Suspect]
     Active Substance: PREDNISOLONE
     Route: 065
  12. DEXAMETHASONE. [Suspect]
     Active Substance: DEXAMETHASONE
     Indication: LYMPHOMA
     Dosage: (2 CYCLES) TWO COURSES
     Route: 065
  13. RITUXIMAB [Suspect]
     Active Substance: RITUXIMAB
     Dosage: (2 CYCLES) TWO COURSES
     Route: 065
  14. RITUXIMAB [Suspect]
     Active Substance: RITUXIMAB
     Dosage: (2 CYCLES) TWO COURSES
     Route: 065
  15. CYCLOPHOSPHAMIDE. [Suspect]
     Active Substance: CYCLOPHOSPHAMIDE
     Dosage: END OF FEBRUARY
     Route: 065
     Dates: start: 201502
  16. BENDAMUSTINE [Suspect]
     Active Substance: BENDAMUSTINE
     Indication: LYMPHOMA
     Dosage: (2 CYCLES) TWO COURSES
     Route: 065
  17. OSELTAMIVIR [Suspect]
     Active Substance: OSELTAMIVIR
     Indication: INFLUENZA
     Route: 048
     Dates: start: 201501
  18. PREDNISOLONE. [Suspect]
     Active Substance: PREDNISOLONE
     Route: 065
     Dates: start: 201412
  19. PROCARBAZINE [Suspect]
     Active Substance: PROCARBAZINE
     Indication: LYMPHOMA
     Dosage: EVERY OTHER DAY
     Route: 065
     Dates: start: 201501
  20. PROCARBAZINE [Suspect]
     Active Substance: PROCARBAZINE
     Route: 065
     Dates: start: 201502
  21. ETOPOSIDE. [Suspect]
     Active Substance: ETOPOSIDE
     Indication: LYMPHOMA
     Dosage: EVERY OTHER DAY
     Route: 065
     Dates: start: 201501
  22. OSELTAMIVIR [Suspect]
     Active Substance: OSELTAMIVIR
     Route: 048
     Dates: start: 201502
  23. PREDNISOLONE. [Suspect]
     Active Substance: PREDNISOLONE
     Indication: LYMPHOMA
     Dosage: (6 CYCLES) SIX COURSES
     Route: 065
  24. CYCLOPHOSPHAMIDE. [Suspect]
     Active Substance: CYCLOPHOSPHAMIDE
     Indication: LYMPHOMA
     Dosage: (6 CYCLES) SIX COURSES
     Route: 065

REACTIONS (3)
  - Condition aggravated [Fatal]
  - Viral load increased [Fatal]
  - Drug resistance [Fatal]
